FAERS Safety Report 8313762-8 (Version None)
Quarter: 2012Q2

REPORT INFORMATION
  Report Type: 
  Country: None (occurrence: None)
  Receive Date: 20120426
  Receipt Date: 20120423
  Transmission Date: 20120825
  Serious: Yes (Death, Other)
  Sender: FDA-Public Use
  Company Number: DE-JNJFOC-20120212060

PATIENT
  Sex: Female

DRUGS (10)
  1. CYCLOPHOSPHAMIDE [Suspect]
     Indication: BREAST CANCER
     Dosage: 6 CYCLES OF 500 MG/M2 (TAC) OR 4 CYCLES OF 600MG/M2 OVER 5-60 MINUTES ON DAY1 EVERY 3WEEKS (AC}T)
     Route: 042
  2. CIPROFLOXACIN [Concomitant]
     Indication: ANTIBIOTIC PROPHYLAXIS
     Dosage: STARTING ON DAY 5 OF EACH CYCLE, IN THE TAC ARM
     Route: 048
  3. ANTIEMETICS [Concomitant]
     Indication: PROPHYLAXIS OF NAUSEA AND VOMITING
     Route: 065
  4. DOXORUBICIN HCL [Suspect]
     Indication: BREAST CANCER
     Dosage: 6 CYCLES OF 50 MG/M2 (TAC) OR 4 CYCLES OF 60 MG/M2 OVER 15 MINUTES ON DAY 1 EVERY 3 WEEKS (AC}T).
     Route: 042
  5. HORMONAL TREATMENT NOS [Concomitant]
     Indication: HORMONE LEVEL ABNORMAL
     Route: 065
  6. RADIATION THERAPY NOS [Suspect]
     Indication: BREAST CANCER
     Route: 065
  7. NEUPOGEN [Concomitant]
     Indication: PROPHYLAXIS
     Route: 065
  8. DOXORUBICIN HCL [Suspect]
     Route: 042
  9. DOCETAXEL [Suspect]
     Indication: BREAST CANCER
     Dosage: 6 CYCLES OF 75 MG/M2 (TAC) OR 4 CYCLES AT 100 MG/M2 (AC}T) EVERY 3 WEEKS
     Route: 042
  10. CORTICOSTEROID [Concomitant]
     Route: 065

REACTIONS (28)
  - DEATH [None]
  - FEBRILE NEUTROPENIA [None]
  - FLUID RETENTION [None]
  - MENSTRUATION IRREGULAR [None]
  - THROMBOSIS [None]
  - MYELODYSPLASTIC SYNDROME [None]
  - PALMAR-PLANTAR ERYTHRODYSAESTHESIA SYNDROME [None]
  - PERIPHERAL SENSORY NEUROPATHY [None]
  - NEUTROPENIC INFECTION [None]
  - NAIL DISORDER [None]
  - MYALGIA [None]
  - DIARRHOEA [None]
  - DYSPNOEA [None]
  - FATIGUE [None]
  - CARDIAC FAILURE CONGESTIVE [None]
  - ANAEMIA [None]
  - SYNCOPE [None]
  - NAUSEA [None]
  - THROMBOCYTOPENIA [None]
  - LEUKAEMIA [None]
  - HYPERGLYCAEMIA [None]
  - STOMATITIS [None]
  - EMBOLISM [None]
  - PAIN [None]
  - NEUTROPENIA [None]
  - VOMITING [None]
  - INFECTION [None]
  - HYPERSENSITIVITY [None]
